FAERS Safety Report 17812922 (Version 2)
Quarter: 2020Q3

REPORT INFORMATION
  Report Type: Spontaneous
  Country: US (occurrence: US)
  Receive Date: 20200521
  Receipt Date: 20200728
  Transmission Date: 20201102
  Serious: No
  Sender: FDA-Public Use
  Company Number: US-ASTRAZENECA-2020SE65688

PATIENT
  Sex: Female

DRUGS (12)
  1. PANTAPROZOLE SODIUM [Concomitant]
     Indication: GASTROOESOPHAGEAL REFLUX DISEASE
  2. CARISOPRODOL. [Concomitant]
     Active Substance: CARISOPRODOL
  3. PULMICORT FLEXHALER [Suspect]
     Active Substance: BUDESONIDE
     Indication: BRONCHIAL HYPERREACTIVITY
     Route: 055
  4. GABAPENTIN. [Concomitant]
     Active Substance: GABAPENTIN
  5. ROPINEROLE HCL [Concomitant]
  6. ZOFRAN [Concomitant]
     Active Substance: ONDANSETRON HYDROCHLORIDE
     Dosage: AS REQUIRED
  7. LOSARTAN POTASSIUM. [Concomitant]
     Active Substance: LOSARTAN POTASSIUM
  8. VENEFLEXIN [Concomitant]
  9. VENTOLIN [Concomitant]
     Active Substance: ALBUTEROL SULFATE
     Indication: ASTHMA
     Dosage: UNKNOWN
  10. OXYCODONE [Concomitant]
     Active Substance: OXYCODONE
  11. LUNESTA [Concomitant]
     Active Substance: ESZOPICLONE
  12. ALEVE [Concomitant]
     Active Substance: NAPROXEN SODIUM

REACTIONS (4)
  - Back pain [Not Recovered/Not Resolved]
  - Anxiety [Not Recovered/Not Resolved]
  - Device leakage [Unknown]
  - Dyspnoea [Not Recovered/Not Resolved]
